FAERS Safety Report 4912817-5 (Version None)
Quarter: 2006Q1

REPORT INFORMATION
  Report Type: 
  Country: None (occurrence: None)
  Receive Date: 20060215
  Receipt Date: 20060110
  Transmission Date: 20060701
  Serious: Yes (Death, Other)
  Sender: FDA-Public Use
  Company Number: PHBS2006RU00914

PATIENT
  Age: 55 Year
  Sex: Female

DRUGS (1)
  1. SANDOSTATIN [Suspect]
     Indication: INSULINOMA
     Route: 030

REACTIONS (6)
  - ABSCESS [None]
  - BLOOD AMYLASE INCREASED [None]
  - DRUG INEFFECTIVE [None]
  - LIPASE INCREASED [None]
  - PANCREATITIS [None]
  - PULMONARY EMBOLISM [None]
